FAERS Safety Report 8597764-2 (Version None)
Quarter: 2012Q3

REPORT INFORMATION
  Report Type: 
  Country: None (occurrence: None)
  Receive Date: 20120816
  Receipt Date: 20120811
  Transmission Date: 20120928
  Serious: Yes (Other)
  Sender: FDA-Public Use
  Company Number: PHHY2012MX070272

PATIENT
  Sex: Male

DRUGS (2)
  1. DIOVAN HCT [Suspect]
     Indication: HYPERTENSION
     Dosage: 1 DF, UNK
     Dates: start: 20120204
  2. GALVUS [Suspect]
     Dates: start: 20100209

REACTIONS (4)
  - LIMB INJURY [None]
  - SKIN DISCOLOURATION [None]
  - FALL [None]
  - MUSCLE RUPTURE [None]
